FAERS Safety Report 23615977 (Version 1)
Quarter: 2024Q1

REPORT INFORMATION
  Report Type: Spontaneous
  Country: UA (occurrence: UA)
  Receive Date: 20240311
  Receipt Date: 20240311
  Transmission Date: 20240410
  Serious: Yes (Other)
  Sender: FDA-Public Use
  Company Number: UA-GLAXOSMITHKLINE-UA2024EME030080

PATIENT

DRUGS (3)
  1. VENTOLIN [Suspect]
     Active Substance: ALBUTEROL SULFATE
     Indication: Pneumonia
     Dosage: 1 PUFF(S)
     Route: 055
     Dates: start: 202402, end: 202402
  2. VENTOLIN [Suspect]
     Active Substance: ALBUTEROL SULFATE
     Indication: Respiratory disorder
  3. AUGMENTIN [Suspect]
     Active Substance: AMOXICILLIN\CLAVULANATE POTASSIUM
     Indication: Product used for unknown indication
     Dosage: 1 DF, BID
     Dates: start: 202402, end: 202402

REACTIONS (3)
  - Urticaria [Recovered/Resolved]
  - Tremor [Recovered/Resolved]
  - Bronchospasm paradoxical [Recovered/Resolved]

NARRATIVE: CASE EVENT DATE: 20240201
